FAERS Safety Report 8388388-0 (Version None)
Quarter: 2012Q2

REPORT INFORMATION
  Report Type: 
  Country: None (occurrence: None)
  Receive Date: 20120525
  Receipt Date: 20120514
  Transmission Date: 20120825
  Serious: Yes (Life-Threatening, Congenital Anomaly, Other)
  Sender: FDA-Public Use
  Company Number: US-ELI_LILLY_AND_COMPANY-US201205007619

PATIENT

DRUGS (2)
  1. CYMBALTA [Suspect]
     Dosage: UNK, UNKNOWN
     Route: 064
  2. CYMBALTA [Suspect]
     Dosage: UNK, UNKNOWN
     Route: 064

REACTIONS (6)
  - VISUAL IMPAIRMENT [None]
  - PREMATURE BABY [None]
  - FOETAL EXPOSURE DURING PREGNANCY [None]
  - GASTROINTESTINAL DISORDER [None]
  - HYPOPLASTIC LEFT HEART SYNDROME [None]
  - CONVULSION [None]
